FAERS Safety Report 23366003 (Version 1)
Quarter: 2024Q1

REPORT INFORMATION
  Report Type: Spontaneous
  Country: US (occurrence: None)
  Receive Date: 20240104
  Receipt Date: 20240104
  Transmission Date: 20240410
  Serious: Yes (Hospitalization)
  Sender: FDA-Public Use
  Company Number: None

PATIENT
  Age: 69 Year
  Sex: Male
  Weight: 58.5 kg

DRUGS (1)
  1. MOUNJARO [Suspect]
     Active Substance: TIRZEPATIDE
     Indication: Type 2 diabetes mellitus
     Dates: start: 20231028, end: 20231220

REACTIONS (11)
  - Nausea [None]
  - Decreased appetite [None]
  - Diarrhoea [None]
  - Therapy interrupted [None]
  - Malaise [None]
  - Feeling cold [None]
  - Tremor [None]
  - Fatigue [None]
  - Dehydration [None]
  - Blood glucose increased [None]
  - Diabetic ketoacidosis [None]

NARRATIVE: CASE EVENT DATE: 20231220
